FAERS Safety Report 10097278 (Version 1)
Quarter: 2014Q2

REPORT INFORMATION
  Report Type: Report from Study
  Country: US (occurrence: US)
  Receive Date: 20140422
  Receipt Date: 20140422
  Transmission Date: 20141212
  Serious: Yes (Other)
  Sender: FDA-Public Use
  Company Number: PHEH2014US007908

PATIENT
  Age: 21 Year
  Sex: Female
  Weight: 72.56 kg

DRUGS (2)
  1. TOBI PODHALER [Suspect]
     Indication: CYSTIC FIBROSIS
     Dosage: 112 MG, BID
     Route: 055
     Dates: start: 201307, end: 201309
  2. CAYSTON [Concomitant]
     Dosage: UNK

REACTIONS (2)
  - Haemoptysis [Recovering/Resolving]
  - Nasopharyngitis [Unknown]
